FAERS Safety Report 4506605-1 (Version None)
Quarter: 2004Q4

REPORT INFORMATION
  Report Type: 
  Country: None (occurrence: None)
  Receive Date: 20041122
  Receipt Date: 20041111
  Transmission Date: 20050328
  Serious: Yes (Hospitalization)
  Sender: FDA-Public Use
  Company Number: JP-BRISTOL-MYERS SQUIBB COMPANY-12763660

PATIENT
  Age: 65 Year
  Sex: Female

DRUGS (10)
  1. STOCRIN CAPS [Suspect]
     Indication: HIV INFECTION
     Route: 048
     Dates: start: 20020930
  2. ZERIT [Suspect]
     Indication: HIV INFECTION
     Route: 048
     Dates: start: 20020930
  3. EPIVIR [Suspect]
     Indication: HIV INFECTION
     Route: 048
     Dates: start: 20020930
  4. GLYBURIDE [Concomitant]
     Dosage: ONCE DAILY
     Route: 048
     Dates: end: 20030401
  5. PREDONINE [Concomitant]
     Dosage: ONCE DAILY
     Route: 048
  6. RIMATIL [Concomitant]
     Dosage: ONCE DAILY
     Route: 048
  7. EVOXAC [Concomitant]
     Route: 048
  8. AZULFIDINE [Concomitant]
     Dosage: ONCE DAILY
     Route: 048
  9. LANSOPRAZOLE [Concomitant]
     Dosage: ONCE DAILY
     Route: 048
  10. PENTAMIDINE ISETHIONATE [Concomitant]
     Dates: start: 20030919, end: 20040123

REACTIONS (4)
  - CARDIOMEGALY [None]
  - DYSPNOEA [None]
  - HYPOTHYROIDISM [None]
  - PALPITATIONS [None]
